FAERS Safety Report 25936733 (Version 1)
Quarter: 2025Q4

REPORT INFORMATION
  Report Type: Spontaneous
  Country: BR (occurrence: BR)
  Receive Date: 20251017
  Receipt Date: 20251017
  Transmission Date: 20260118
  Serious: Yes (Other)
  Sender: AMERICAN REGENT
  Company Number: BR-AMERICAN REGENT INC-2025003773

PATIENT
  Age: 40 Year
  Sex: Female

DRUGS (2)
  1. FERINJECT [Suspect]
     Active Substance: FERRIC CARBOXYMALTOSE
     Indication: Iron deficiency anaemia
     Dosage: 1000 MILLIGRAM
     Route: 042
     Dates: start: 20250919, end: 20250919
  2. FERINJECT [Suspect]
     Active Substance: FERRIC CARBOXYMALTOSE
     Dosage: 500 MILLIGRAM
     Route: 042
     Dates: start: 20250927

REACTIONS (3)
  - Infusion related reaction [Recovered/Resolved]
  - Hyperaemia [Recovered/Resolved]
  - Infusion site plaque [Recovered/Resolved]

NARRATIVE: CASE EVENT DATE: 20250919
